FAERS Safety Report 6530835-0 (Version None)
Quarter: 2010Q1

REPORT INFORMATION
  Report Type: 
  Country: None (occurrence: None)
  Receive Date: 20100108
  Receipt Date: 20090327
  Transmission Date: 20100710
  Serious: No
  Sender: FDA-Public Use
  Company Number: A0775894A

PATIENT
  Age: 63 Year
  Sex: Male

DRUGS (9)
  1. LOVAZA [Suspect]
     Indication: DRUG USE FOR UNKNOWN INDICATION
     Dosage: 2CAP TWICE PER DAY
     Route: 048
     Dates: start: 20070101
  2. PROCARDIA [Concomitant]
  3. ASPIRIN [Concomitant]
  4. LISINOPRIL [Concomitant]
  5. HYDROCHLOROTHIAZIDE [Concomitant]
  6. LIPITOR [Concomitant]
  7. UNKNOWN MEDICATION [Concomitant]
  8. NOVOLOG [Concomitant]
  9. BYETTA [Concomitant]

REACTIONS (1)
  - ERUCTATION [None]
